FAERS Safety Report 9415439 (Version 1)
Quarter: 2013Q3

REPORT INFORMATION
  Report Type: Spontaneous
  Country: HR (occurrence: HR)
  Receive Date: 20130723
  Receipt Date: 20130723
  Transmission Date: 20140515
  Serious: Yes (Hospitalization, Other)
  Sender: FDA-Public Use
  Company Number: HR-ACTAVIS-2013-12560

PATIENT
  Age: 26 Year
  Sex: Female

DRUGS (2)
  1. CARBAMAZEPINE (UNKNOWN) [Suspect]
     Indication: EPILEPSY
     Dosage: 800 MG, DAILY
     Route: 065
  2. GESTODENE [Interacting]
     Indication: ORAL CONTRACEPTION
     Dosage: 20 MCG OF ETHINYLESTRADIOL AND 75 MCG OF GESTODEN
     Route: 048

REACTIONS (4)
  - Ectopic pregnancy [Recovered/Resolved]
  - Pregnancy on oral contraceptive [Recovered/Resolved]
  - Drug ineffective [Recovered/Resolved]
  - Drug interaction [Recovered/Resolved]
